FAERS Safety Report 18267030 (Version 3)
Quarter: 2020Q4

REPORT INFORMATION
  Report Type: Other
  Country: US (occurrence: US)
  Receive Date: 20200915
  Receipt Date: 20201106
  Transmission Date: 20210113
  Serious: Yes (Death, Hospitalization, Other)
  Sender: FDA-Public Use
  Company Number: US-ACORDA-ACO_166085_2020

PATIENT
  Age: 73 Year
  Sex: Male

DRUGS (1)
  1. INBRIJA [Suspect]
     Active Substance: LEVODOPA
     Indication: PARKINSON^S DISEASE
     Dosage: 42 MILLIGRAM (2 CAPSULES FOR TOTAL OF 84MG), AS NEEDED

REACTIONS (4)
  - Dyspnoea [Unknown]
  - Hypertension [Unknown]
  - Chest discomfort [Unknown]
  - Myocardial infarction [Fatal]

NARRATIVE: CASE EVENT DATE: 20200829
